FAERS Safety Report 20174604 (Version 2)
Quarter: 2021Q4

REPORT INFORMATION
  Report Type: Spontaneous
  Country: US (occurrence: US)
  Receive Date: 20211213
  Receipt Date: 20211230
  Transmission Date: 20220303
  Serious: No
  Sender: FDA-Public Use
  Company Number: US-GRANULES-US-2021GRASPO00564

PATIENT
  Age: 75 Year
  Sex: Male
  Weight: 260 kg

DRUGS (5)
  1. ACETAMINOPHEN [Suspect]
     Active Substance: ACETAMINOPHEN
     Indication: Product used for unknown indication
     Route: 065
     Dates: start: 2021
  2. ATORVASTATIN [Concomitant]
     Active Substance: ATORVASTATIN
     Route: 065
  3. BRILINTA [Concomitant]
     Active Substance: TICAGRELOR
     Route: 065
  4. METOPROLOL [Concomitant]
     Active Substance: METOPROLOL
     Indication: Blood pressure abnormal
     Route: 065
  5. ASPIRIN [Concomitant]
     Active Substance: ASPIRIN
     Route: 065

REACTIONS (2)
  - Poor quality product administered [Unknown]
  - Product physical issue [Unknown]

NARRATIVE: CASE EVENT DATE: 20210101
